FAERS Safety Report 4323667-5 (Version None)
Quarter: 2004Q1

REPORT INFORMATION
  Report Type: 
  Country: None (occurrence: None)
  Receive Date: 20040323
  Receipt Date: 20040312
  Transmission Date: 20041129
  Serious: Yes (Life-Threatening, Hospitalization, Disabling)
  Sender: FDA-Public Use
  Company Number: NL-JNJFOC-20040303089

PATIENT
  Age: 62 Year
  Sex: Female

DRUGS (6)
  1. CORDIUM (BEPRIDIL HYDROCHLORIDE MONOHYDRATE) TABLETS [Suspect]
     Indication: SINUS RHYTHM
     Dosage: 150 MG, 1 IN 1 DAY,ORAL
     Route: 048
     Dates: start: 20040121, end: 20040209
  2. CARVEDILOL [Suspect]
     Indication: SINUS RHYTHM
     Dosage: 10 MG, 1 IN 1 DAY, ORAL
     Route: 048
     Dates: start: 20031215, end: 20040209
  3. DIGOXIN [Concomitant]
  4. WARFARIN POTASSIUM (WARFARIN POTASSIUM) [Concomitant]
  5. FUROSEMIDE [Concomitant]
  6. SENNA LEAF (SENNA LEAF) [Concomitant]

REACTIONS (7)
  - ADAMS-STOKES SYNDROME [None]
  - DRUG INTERACTION [None]
  - LOSS OF CONSCIOUSNESS [None]
  - REFUSAL OF TREATMENT BY PATIENT [None]
  - SINUS BRADYCARDIA [None]
  - SUPRAVENTRICULAR EXTRASYSTOLES [None]
  - VENTRICULAR FIBRILLATION [None]
